FAERS Safety Report 7539052-9 (Version None)
Quarter: 2011Q2

REPORT INFORMATION
  Report Type: 
  Country: None (occurrence: None)
  Receive Date: 20110610
  Receipt Date: 20010125
  Transmission Date: 20111010
  Serious: Yes (Death, Other)
  Sender: FDA-Public Use
  Company Number: PHBS2000CA11922

PATIENT
  Sex: Male

DRUGS (2)
  1. CLOZAPINE [Suspect]
     Indication: PSYCHOTIC DISORDER
     Dosage: 400 MG, DAILY
     Route: 048
     Dates: start: 20000628
  2. VALPROIC ACID [Concomitant]

REACTIONS (1)
  - ASPIRATION [None]
